FAERS Safety Report 24455350 (Version 2)
Quarter: 2024Q4

REPORT INFORMATION
  Report Type: Report from Study
  Country: ES (occurrence: ES)
  Receive Date: 20241017
  Receipt Date: 20241018
  Transmission Date: 20250114
  Serious: No
  Sender: ROCHE
  Company Number: ES-ROCHE-3485317

PATIENT

DRUGS (6)
  1. RITUXIMAB [Suspect]
     Active Substance: RITUXIMAB
     Indication: Glomerulonephropathy
     Route: 042
  2. TOCILIZUMAB [Suspect]
     Active Substance: TOCILIZUMAB
     Indication: Glomerulonephropathy
     Route: 065
  3. OBINUTUZUMAB [Suspect]
     Active Substance: OBINUTUZUMAB
     Indication: Glomerulonephropathy
     Route: 065
  4. ECULIZUMAB [Concomitant]
     Active Substance: ECULIZUMAB
  5. RAVULIZUMAB [Concomitant]
     Active Substance: RAVULIZUMAB
  6. CYCLOPHOSPHAMIDE [Concomitant]
     Active Substance: CYCLOPHOSPHAMIDE

REACTIONS (12)
  - Off label use [Unknown]
  - Off label use [Unknown]
  - Hyperaemia [Unknown]
  - Palpitations [Unknown]
  - Tremor [Unknown]
  - Headache [Unknown]
  - Nausea [Unknown]
  - Hepatitis B reactivation [Unknown]
  - Chronic obstructive pulmonary disease [Unknown]
  - Dermatitis allergic [Unknown]
  - Pneumonitis [Unknown]
  - Off label use [Unknown]
